FAERS Safety Report 6714187-9 (Version None)
Quarter: 2010Q2

REPORT INFORMATION
  Report Type: 
  Country: None (occurrence: None)
  Receive Date: 20100506
  Receipt Date: 20100426
  Transmission Date: 20101027
  Serious: Yes (Death)
  Sender: FDA-Public Use
  Company Number: US-JNJCH-2010003316

PATIENT
  Age: 82 Year
  Sex: Male

DRUGS (3)
  1. NEOSPORIN MAXIMUM STRENGTH OINTMENT [Suspect]
     Indication: ANIMAL BITE
     Dosage: TEXT:QUARTER OF INCH AMOUNT TWICE A DAY
     Route: 061
  2. COUMADIN [Concomitant]
     Indication: CARDIAC DISORDER
     Dosage: TEXT:UNKNOWN
     Route: 065
  3. METFORMIN [Concomitant]
     Indication: DIABETES MELLITUS
     Dosage: TEXT:UNKNOWN
     Route: 065

REACTIONS (2)
  - DEATH [None]
  - THERAPEUTIC RESPONSE UNEXPECTED [None]
